FAERS Safety Report 23637112 (Version 1)
Quarter: 2024Q1

REPORT INFORMATION
  Report Type: Spontaneous
  Country: DE (occurrence: DE)
  Receive Date: 20240315
  Receipt Date: 20240315
  Transmission Date: 20240409
  Serious: Yes (Hospitalization, Other)
  Sender: FDA-Public Use
  Company Number: DE-BRISTOL-MYERS SQUIBB COMPANY-2024-037749

PATIENT
  Age: 62 Year
  Sex: Male

DRUGS (5)
  1. OPDIVO [Suspect]
     Active Substance: NIVOLUMAB
     Indication: Renal cancer metastatic
     Dosage: DOSE : 240 MG;     FREQ : REPEATED D15
     Dates: start: 20231110
  2. OPDIVO [Suspect]
     Active Substance: NIVOLUMAB
     Dosage: DOSE : 240 MG;     FREQ : REPEATED D15
     Dates: start: 20231124
  3. CABOZANTINIB [Concomitant]
     Active Substance: CABOZANTINIB
     Indication: Renal cancer metastatic
  4. CABOZANTINIB [Concomitant]
     Active Substance: CABOZANTINIB
     Dates: start: 20231110
  5. UNSPECIFIED INGREDIENT [Concomitant]
     Active Substance: UNSPECIFIED INGREDIENT

REACTIONS (14)
  - Respiratory failure [Unknown]
  - Atrial fibrillation [Unknown]
  - Cardiac failure [Unknown]
  - Hypothyroidism [Unknown]
  - Pneumonitis [Unknown]
  - Pleural effusion [Unknown]
  - Anaemia [Unknown]
  - Ischaemic cardiomyopathy [Unknown]
  - Generalised oedema [Unknown]
  - C-reactive protein [Unknown]
  - Dilated cardiomyopathy [Unknown]
  - Pain [Unknown]
  - Ascites [Unknown]
  - Tachyarrhythmia [Unknown]

NARRATIVE: CASE EVENT DATE: 20240104
